FAERS Safety Report 13269518 (Version 1)
Quarter: 2017Q1

REPORT INFORMATION
  Report Type: Spontaneous
  Country: US (occurrence: US)
  Receive Date: 20170224
  Receipt Date: 20170224
  Transmission Date: 20170428
  Serious: Yes (Other)
  Sender: FDA-Public Use
  Company Number: US-BAYER-2017-031270

PATIENT
  Age: 66 Year
  Sex: Female
  Weight: 79 kg

DRUGS (6)
  1. ALKA-SELTZER PLUS DAY AND NIGHT MULTI-SYMPTOM COLD AND FLU FORMULA [Suspect]
     Active Substance: ACETAMINOPHEN\DEXTROMETHORPHAN HYDROBROMIDE\DOXYLAMINE SUCCINATE\PHENYLEPHRINE
     Indication: HYPERSENSITIVITY
     Dosage: 1 DF, UNK
     Route: 048
     Dates: start: 20170210, end: 20170214
  2. ALKA-SELTZER PLUS DAY AND NIGHT MULTI-SYMPTOM COLD AND FLU FORMULA [Suspect]
     Active Substance: ACETAMINOPHEN\DEXTROMETHORPHAN HYDROBROMIDE\DOXYLAMINE SUCCINATE\PHENYLEPHRINE
     Indication: NASOPHARYNGITIS
     Dosage: UNK, FOR 3-4 DAYS
     Dates: start: 201604
  3. VITAMIN A [Concomitant]
     Active Substance: VITAMIN A
     Dosage: UNK
  4. MULTIVITAMINS [Concomitant]
     Active Substance: VITAMINS
     Dosage: UNK
  5. FISH OIL [Concomitant]
     Active Substance: FISH OIL
  6. ALKA-SELTZER PLUS DAY AND NIGHT MULTI-SYMPTOM COLD AND FLU FORMULA [Suspect]
     Active Substance: ACETAMINOPHEN\DEXTROMETHORPHAN HYDROBROMIDE\DOXYLAMINE SUCCINATE\PHENYLEPHRINE
     Indication: HYPERSENSITIVITY
     Dosage: UNK, FOR 3-4 DAYS
     Dates: start: 201611

REACTIONS (2)
  - Dyspnoea [Unknown]
  - Fluid retention [Not Recovered/Not Resolved]

NARRATIVE: CASE EVENT DATE: 20170215
